FAERS Safety Report 11202704 (Version 1)
Quarter: 2015Q2

REPORT INFORMATION
  Report Type: Spontaneous
  Country: FR (occurrence: FR)
  Receive Date: 20150619
  Receipt Date: 20150619
  Transmission Date: 20150821
  Serious: Yes (Hospitalization)
  Sender: FDA-Public Use
  Company Number: FR-SA-2015SA085230

PATIENT
  Age: 80 Year
  Sex: Female

DRUGS (7)
  1. TRILEPTAL [Suspect]
     Active Substance: OXCARBAZEPINE
     Dosage: DOSE DECREASED?FREEQUENCY: 300 MG EVERY 2 DAYS REDUCED TO 300 MG EVERY 3 DAYS.
     Route: 048
  2. LASILIX [Suspect]
     Active Substance: FUROSEMIDE
     Dosage: FORM: SCORED TABLET
     Route: 048
     Dates: end: 20150405
  3. TRILEPTAL [Suspect]
     Active Substance: OXCARBAZEPINE
     Route: 048
     Dates: start: 20150405, end: 20150421
  4. BISOPROLOL FUMARATE. [Concomitant]
     Active Substance: BISOPROLOL FUMARATE
     Dosage: LONG TERM
     Route: 048
  5. PRADAXA [Concomitant]
     Active Substance: DABIGATRAN ETEXILATE MESYLATE
     Dosage: LONG TERM?110 MG
     Route: 048
  6. TAHOR [Concomitant]
     Active Substance: ATORVASTATIN CALCIUM
     Dosage: 20MG
  7. RAMIPRIL. [Concomitant]
     Active Substance: RAMIPRIL
     Dosage: LONG TERM?10 MG
     Route: 048

REACTIONS (2)
  - Seizure [Recovered/Resolved]
  - Hyponatraemia [Recovered/Resolved]

NARRATIVE: CASE EVENT DATE: 20150405
